FAERS Safety Report 18969019 (Version 1)
Quarter: 2021Q1

REPORT INFORMATION
  Report Type: Report from Study
  Country: US (occurrence: US)
  Receive Date: 20210304
  Receipt Date: 20210304
  Transmission Date: 20210420
  Serious: Yes (Other)
  Sender: FDA-Public Use
  Company Number: US-MYLANLABS-2021M1013233

PATIENT
  Age: 89 Year
  Sex: Female

DRUGS (1)
  1. TOBI [Suspect]
     Active Substance: TOBRAMYCIN
     Indication: PRODUCT USED FOR UNKNOWN INDICATION
     Dosage: INHALE 300 MG (ONE AMPULE) VIA NEBULIZER TWICE  DAILY (12 HOURS APART) FOR 4 ALTERNATING 28  DAYS

REACTIONS (1)
  - Pneumonia [Unknown]
